FAERS Safety Report 8978977 (Version 2)
Quarter: 2013Q1

REPORT INFORMATION
  Report Type: Report from Study
  Country: FR (occurrence: FR)
  Receive Date: 20121220
  Receipt Date: 20130308
  Transmission Date: 20140127
  Serious: Yes (Other)
  Sender: FDA-Public Use
  Company Number: FR-ABBOTT-12P-056-1022167-00

PATIENT
  Age: 23 Year
  Sex: Female

DRUGS (4)
  1. HUMIRA [Suspect]
     Indication: CROHN^S DISEASE
     Route: 058
     Dates: start: 200806
  2. HUMIRA [Suspect]
     Dates: start: 20100204
  3. HUMIRA [Suspect]
     Route: 058
     Dates: start: 20120202
  4. IMUREL [Concomitant]
     Indication: CROHN^S DISEASE
     Dates: start: 201008

REACTIONS (1)
  - Cervical dysplasia [Recovered/Resolved]
